FAERS Safety Report 7080728-8 (Version None)
Quarter: 2010Q4

REPORT INFORMATION
  Report Type: 
  Country: None (occurrence: None)
  Receive Date: 20101103
  Receipt Date: 20101025
  Transmission Date: 20110411
  Serious: Yes (Other)
  Sender: FDA-Public Use
  Company Number: US-SANOFI-AVENTIS-2010SA065156

PATIENT
  Age: 37 Year
  Sex: Female
  Weight: 63.03 kg

DRUGS (5)
  1. FERRLECIT [Suspect]
     Route: 051
     Dates: start: 20101024, end: 20101024
  2. FERRLECIT [Suspect]
     Route: 051
     Dates: start: 20101025, end: 20101025
  3. I.V. SOLUTIONS [Concomitant]
     Route: 042
  4. OXYTOCIN [Concomitant]
     Route: 042
  5. DOCUSATE SODIUM [Concomitant]

REACTIONS (4)
  - DRUG EXPOSURE DURING PREGNANCY [None]
  - HAEMATOCRIT DECREASED [None]
  - HAEMOGLOBIN DECREASED [None]
  - OFF LABEL USE [None]
